FAERS Safety Report 6699091-7 (Version None)
Quarter: 2010Q2

REPORT INFORMATION
  Report Type: 
  Country: None (occurrence: None)
  Receive Date: 20100427
  Receipt Date: 20100406
  Transmission Date: 20101027
  Serious: No
  Sender: FDA-Public Use
  Company Number: US-B.I. PHARMACEUTICALS,INC./RIDGEFIELD-2010-BP-03026BP

PATIENT
  Sex: Female

DRUGS (7)
  1. COMBIVENT [Suspect]
     Indication: UPPER RESPIRATORY TRACT INFECTION
     Route: 055
     Dates: start: 20100310
  2. COMBIVENT [Suspect]
     Indication: SINUSITIS
  3. COMBIVENT [Suspect]
     Indication: WHEEZING
  4. CLARITIN [Concomitant]
     Indication: UPPER RESPIRATORY TRACT INFECTION
     Dates: start: 20100301
  5. CLARITIN [Concomitant]
     Indication: SINUSITIS
  6. PRILOSEC OTC [Concomitant]
  7. AMOXICILLIN [Concomitant]

REACTIONS (5)
  - HYPERSENSITIVITY [None]
  - PRURITUS [None]
  - PRURITUS GENERALISED [None]
  - SWOLLEN TONGUE [None]
  - URTICARIA [None]
